FAERS Safety Report 5114645-7 (Version None)
Quarter: 2006Q3

REPORT INFORMATION
  Report Type: 
  Country: None (occurrence: None)
  Receive Date: 20060926
  Receipt Date: 20060914
  Transmission Date: 20061208
  Serious: Yes (Death, Other)
  Sender: FDA-Public Use
  Company Number: US-JNJFOC-20041100083

PATIENT
  Sex: Male

DRUGS (8)
  1. REMICADE [Suspect]
     Route: 042
  2. REMICADE [Suspect]
     Indication: RHEUMATOID ARTHRITIS
     Route: 042
  3. NEURONTIN [Concomitant]
  4. MOBIC [Concomitant]
  5. LISINOPRIL [Concomitant]
  6. ASCORBIC ACID [Concomitant]
  7. VITAMIN D [Concomitant]
  8. MSM [Concomitant]

REACTIONS (3)
  - LYMPHOMA [None]
  - MENTAL DISORDER [None]
  - NEOPLASM MALIGNANT [None]
